FAERS Safety Report 14110640 (Version 5)
Quarter: 2019Q4

REPORT INFORMATION
  Report Type: Report from Study
  Country: CA (occurrence: CA)
  Receive Date: 20171020
  Receipt Date: 20191119
  Transmission Date: 20200122
  Serious: Yes (Other)
  Sender: FDA-Public Use
  Company Number: PHHY2017CA134026

PATIENT
  Age: 75 Year
  Sex: Female

DRUGS (13)
  1. BISOPROLOL [Concomitant]
     Active Substance: BISOPROLOL
     Indication: PRODUCT USED FOR UNKNOWN INDICATION
     Route: 065
  2. JADENU [Suspect]
     Active Substance: DEFERASIROX
     Indication: MYELODYSPLASTIC SYNDROME
     Dosage: 540 MG, QD
     Route: 048
     Dates: start: 20170902
  3. JADENU [Suspect]
     Active Substance: DEFERASIROX
     Dosage: 360 MG, QD
     Route: 048
  4. JADENU [Suspect]
     Active Substance: DEFERASIROX
     Dosage: 720 MG, QD (360 MGX2 TABLETS)
     Route: 048
     Dates: start: 20190605
  5. JADENU [Suspect]
     Active Substance: DEFERASIROX
     Dosage: 360 MG, QD
     Route: 048
     Dates: start: 201712
  6. POTASSIUM CHLORIDE. [Concomitant]
     Active Substance: POTASSIUM CHLORIDE
     Indication: PRODUCT USED FOR UNKNOWN INDICATION
     Route: 065
  7. JADENU [Suspect]
     Active Substance: DEFERASIROX
     Dosage: 1080 MG, QD
     Route: 048
  8. WATER PILLS [Concomitant]
     Active Substance: UNSPECIFIED INGREDIENT
     Indication: PRODUCT USED FOR UNKNOWN INDICATION
     Route: 065
  9. ELIQUIS [Concomitant]
     Active Substance: APIXABAN
     Indication: PRODUCT USED FOR UNKNOWN INDICATION
     Route: 065
  10. FUROSEMIDE. [Concomitant]
     Active Substance: FUROSEMIDE
     Indication: PRODUCT USED FOR UNKNOWN INDICATION
     Route: 065
  11. EPREX [Concomitant]
     Active Substance: ERYTHROPOIETIN
     Indication: PRODUCT USED FOR UNKNOWN INDICATION
     Dosage: 30000 OT, QW
     Route: 058
  12. JADENU [Suspect]
     Active Substance: DEFERASIROX
     Dosage: 450 MG
     Route: 048
     Dates: start: 20171201
  13. JADENU [Suspect]
     Active Substance: DEFERASIROX
     Dosage: 990 MG, QD
     Route: 048

REACTIONS (21)
  - Dehydration [Unknown]
  - Cough [Unknown]
  - Serum ferritin increased [Unknown]
  - Red blood cell count decreased [Unknown]
  - Alopecia [Unknown]
  - Malaise [Unknown]
  - Bronchitis [Not Recovered/Not Resolved]
  - Blood iron decreased [Unknown]
  - Blindness transient [Unknown]
  - Weight decreased [Unknown]
  - Eating disorder [Unknown]
  - Headache [Unknown]
  - Dizziness [Unknown]
  - Blood creatinine increased [Unknown]
  - Asthenia [Unknown]
  - Abdominal pain upper [Recovering/Resolving]
  - Sneezing [Unknown]
  - Night sweats [Unknown]
  - Nausea [Recovering/Resolving]
  - Fatigue [Unknown]
  - Blood iron increased [Unknown]

NARRATIVE: CASE EVENT DATE: 20171012
